FAERS Safety Report 15878128 (Version 2)
Quarter: 2019Q2

REPORT INFORMATION
  Report Type: Spontaneous
  Country: US (occurrence: US)
  Receive Date: 20190128
  Receipt Date: 20190510
  Transmission Date: 20190711
  Serious: Yes (Other)
  Sender: FDA-Public Use
  Company Number: US-PFIZER INC-2019033754

PATIENT
  Age: 14 Year
  Sex: Male

DRUGS (1)
  1. GENOTROPIN MQ [Suspect]
     Active Substance: SOMATROPIN
     Indication: PRADER-WILLI SYNDROME
     Dosage: 0.4 MG, DAILY
     Route: 058
     Dates: start: 20130529

REACTIONS (24)
  - Obesity [Unknown]
  - Blood luteinising hormone decreased [Unknown]
  - Weight increased [Unknown]
  - Irritability [Unknown]
  - Fatigue [Unknown]
  - Wheezing [Unknown]
  - Vomiting [Unknown]
  - Primary hypogonadism [Unknown]
  - Vitamin D decreased [Unknown]
  - Cough [Unknown]
  - Headache [Unknown]
  - Abnormal behaviour [Unknown]
  - Temperature intolerance [Unknown]
  - Regurgitation [Unknown]
  - Diarrhoea [Unknown]
  - Polyuria [Unknown]
  - Glucose tolerance impaired [Unknown]
  - Growth hormone deficiency [Unknown]
  - Muscle spasms [Unknown]
  - Glycosylated haemoglobin increased [Unknown]
  - Enuresis [Unknown]
  - Blood testosterone abnormal [Unknown]
  - Hyperhidrosis [Unknown]
  - Dyspnoea [Unknown]
